FAERS Safety Report 15191141 (Version 5)
Quarter: 2019Q2

REPORT INFORMATION
  Report Type: Spontaneous
  Country: NL (occurrence: NL)
  Receive Date: 20180724
  Receipt Date: 20190429
  Transmission Date: 20190711
  Serious: Yes (Hospitalization, Other)
  Sender: FDA-Public Use
  Company Number: NL-MYLANLABS-2018M1053733

PATIENT
  Age: 51 Year
  Sex: Female

DRUGS (4)
  1. IBUPROFEN. [Suspect]
     Active Substance: IBUPROFEN
     Indication: ANALGESIC INTERVENTION SUPPORTIVE THERAPY
  2. IBUPROFEN. [Suspect]
     Active Substance: IBUPROFEN
     Indication: MASTOCYTOSIS
     Dosage: UNK
     Route: 065
  3. DICLOFENAC [Suspect]
     Active Substance: DICLOFENAC
     Indication: MASTOCYTOSIS
     Dosage: UNK
     Route: 065
  4. DICLOFENAC [Suspect]
     Active Substance: DICLOFENAC
     Indication: ANALGESIC INTERVENTION SUPPORTIVE THERAPY

REACTIONS (5)
  - Drug hypersensitivity [Unknown]
  - Palpitations [Unknown]
  - Circulatory collapse [Unknown]
  - Hypersensitivity [Unknown]
  - Angioedema [Unknown]
